FAERS Safety Report 7917511-4 (Version None)
Quarter: 2011Q4

REPORT INFORMATION
  Report Type: 
  Country: None (occurrence: None)
  Receive Date: 20111116
  Receipt Date: 20111110
  Transmission Date: 20120403
  Serious: Yes (Hospitalization)
  Sender: FDA-Public Use
  Company Number: JP-ROCHE-1012989

PATIENT
  Age: 60 Year
  Sex: Male

DRUGS (5)
  1. LEVOLEUCOVORIN CALCIUM [Suspect]
     Indication: COLORECTAL CANCER
     Dosage: DOSAGE IS UNCERTAIN.
     Route: 041
  2. FLUOROURACIL [Suspect]
     Indication: COLORECTAL CANCER
     Dosage: DOSAGE IS UNCERTAIN.
     Route: 040
  3. FLUOROURACIL [Suspect]
     Dosage: DOSAGE IS UNCERTAIN.
     Route: 041
  4. AVASTIN [Suspect]
     Indication: COLORECTAL CANCER
     Route: 041
     Dates: end: 20111101
  5. OXALIPLATIN [Suspect]
     Indication: COLORECTAL CANCER
     Dosage: DOSAGE IS UNCERTAIN.
     Route: 041

REACTIONS (1)
  - HAEMOLYTIC URAEMIC SYNDROME [None]
